FAERS Safety Report 9334526 (Version 1)
Quarter: 2013Q2

REPORT INFORMATION
  Report Type: Spontaneous
  Country: ES (occurrence: ES)
  Receive Date: 20130606
  Receipt Date: 20130606
  Transmission Date: 20140414
  Serious: Yes (Other)
  Sender: FDA-Public Use
  Company Number: ES-ASTRAZENECA-2013SE37801

PATIENT
  Age: 60 Year
  Sex: Female

DRUGS (4)
  1. ROSUVASTATIN [Suspect]
     Indication: BLOOD CHOLESTEROL INCREASED
     Route: 048
  2. GEMFIBROZIL [Concomitant]
  3. IBANDRONIC ACID (BONVIVA) [Concomitant]
     Dosage: ONCE A MONTH
  4. PREDNISONE [Concomitant]

REACTIONS (1)
  - Erythema multiforme [Recovered/Resolved]
